FAERS Safety Report 10746414 (Version 1)
Quarter: 2015Q1

REPORT INFORMATION
  Report Type: Spontaneous
  Country: US (occurrence: US)
  Receive Date: 20150128
  Receipt Date: 20150128
  Transmission Date: 20150721
  Serious: Yes (Other)
  Sender: FDA-Public Use
  Company Number: US-PFIZER INC-2015032080

PATIENT
  Age: 79 Year
  Sex: Female
  Weight: 77.98 kg

DRUGS (1)
  1. ESTRING [Suspect]
     Active Substance: ESTRADIOL
     Dosage: UNK
     Dates: start: 2001

REACTIONS (2)
  - Pneumonia [Unknown]
  - Herpes zoster [Unknown]
